FAERS Safety Report 5366641-2 (Version None)
Quarter: 2007Q2

REPORT INFORMATION
  Report Type: 
  Country: None (occurrence: None)
  Receive Date: 20070622
  Receipt Date: 20070614
  Transmission Date: 20071010
  Serious: Yes (Hospitalization, Other)
  Sender: FDA-Public Use
  Company Number: BR-PFIZER INC-2007049510

PATIENT
  Sex: Female
  Weight: 70 kg

DRUGS (4)
  1. CELEBRA [Suspect]
     Indication: DYSARTHRIA
     Route: 048
  2. DOSTINEX [Concomitant]
     Route: 048
  3. CALCIUM CHLORIDE [Concomitant]
  4. ALENDRONATE SODIUM [Concomitant]

REACTIONS (3)
  - DRUG INEFFECTIVE [None]
  - FALL [None]
  - FEMUR FRACTURE [None]
